FAERS Safety Report 14509616 (Version 1)
Quarter: 2018Q1

REPORT INFORMATION
  Report Type: Spontaneous
  Country: US (occurrence: US)
  Receive Date: 20180209
  Receipt Date: 20180209
  Transmission Date: 20180509
  Serious: No
  Sender: FDA-Public Use
  Company Number: US-GLAXOSMITHKLINE-US2018018620

PATIENT
  Age: 65 Year
  Sex: Male

DRUGS (1)
  1. ABREVA [Suspect]
     Active Substance: DOCOSANOL
     Indication: ORAL HERPES
     Dosage: 4 TO 6 TIMES A DAY
     Dates: start: 20180110, end: 20180202

REACTIONS (2)
  - Drug effect incomplete [Recovering/Resolving]
  - Incorrect drug administration duration [Recovering/Resolving]

NARRATIVE: CASE EVENT DATE: 20180110
